FAERS Safety Report 6588886-6 (Version None)
Quarter: 2010Q1

REPORT INFORMATION
  Report Type: 
  Country: None (occurrence: None)
  Receive Date: 20100218
  Receipt Date: 20100211
  Transmission Date: 20100710
  Serious: Yes (Hospitalization)
  Sender: FDA-Public Use
  Company Number: B0634261A

PATIENT
  Age: 56 Year
  Sex: Male

DRUGS (3)
  1. ZOVIRAX [Suspect]
     Indication: SECONDARY IMMUNODEFICIENCY
     Route: 048
     Dates: start: 20090312, end: 20090318
  2. ALLOPURINOL [Suspect]
     Indication: SECONDARY IMMUNODEFICIENCY
     Route: 048
     Dates: start: 20090223, end: 20090318
  3. SEPTRIN FORTE [Suspect]
     Indication: SECONDARY IMMUNODEFICIENCY
     Route: 048
     Dates: start: 20090223, end: 20090318

REACTIONS (3)
  - PRURITUS [None]
  - RASH ERYTHEMATOUS [None]
  - RASH MACULO-PAPULAR [None]
